FAERS Safety Report 9106355 (Version 8)
Quarter: 2013Q2

REPORT INFORMATION
  Report Type: Report from Study
  Country: NL (occurrence: NL)
  Receive Date: 20130221
  Receipt Date: 20130530
  Transmission Date: 20140414
  Serious: Yes (Hospitalization, Other)
  Sender: FDA-Public Use
  Company Number: NL-ABBOTT-13P-114-1049922-00

PATIENT
  Age: 59 Year
  Sex: Female
  Weight: 86 kg

DRUGS (21)
  1. HUMIRA 40MG/0.4ML [Suspect]
     Indication: RHEUMATOID ARTHRITIS
     Route: 058
     Dates: start: 20120515, end: 20130120
  2. HUMIRA 40MG/0.4ML [Suspect]
     Route: 058
     Dates: start: 20130207
  3. PREDNISOLONE [Concomitant]
     Indication: RHEUMATOID ARTHRITIS
     Dates: start: 20110413, end: 20130120
  4. DICLOFENAC [Concomitant]
     Indication: RHEUMATOID ARTHRITIS
     Dates: start: 20110413
  5. FOLIC ACID [Concomitant]
     Indication: PROPHYLAXIS
     Dates: start: 20110413
  6. METHOTREXATE [Concomitant]
     Indication: RHEUMATOID ARTHRITIS
     Dates: start: 20110413
  7. ALENDURONINEZUUR [Concomitant]
     Indication: OSTEOPOROSIS PROPHYLAXIS
     Dates: start: 20120413
  8. ACETYLSALICYLZUUR [Concomitant]
     Indication: HYPERTENSION
     Dates: start: 20110101
  9. HYDROCHLOROTHIAZIDE [Concomitant]
     Indication: HYPERTENSION
     Dates: start: 20110101
  10. PERINDOPRIL [Concomitant]
     Indication: HYPERTENSION
     Dates: start: 20120504
  11. METOPROLOL [Concomitant]
     Indication: HYPERTENSION
     Dates: start: 20120504
  12. AMITRIPTYLINE [Concomitant]
     Indication: DEPRESSION
     Dates: start: 20120413
  13. METHYLDOPA [Concomitant]
     Indication: HYPERTENSION
     Dates: start: 20110308
  14. PANTOZOL [Concomitant]
     Indication: GASTRIC DISORDER
     Dates: start: 20110308
  15. PANTOZOL [Concomitant]
     Indication: PROPHYLAXIS
  16. VITAMIN D [Concomitant]
     Indication: VITAMIN D DEFICIENCY
     Dates: start: 20120628
  17. FERROFUMARAAT [Concomitant]
     Indication: ANAEMIA
     Dates: start: 20120628, end: 20130120
  18. LANTUS [Concomitant]
  19. NOVORAPID [Concomitant]
  20. PARACETAMOL [Concomitant]
     Indication: PRODUCT USED FOR UNKNOWN INDICATION
     Dates: start: 20110308
  21. CAFFEINE [Concomitant]
     Indication: PRODUCT USED FOR UNKNOWN INDICATION
     Dates: start: 20110308

REACTIONS (1)
  - Type 2 diabetes mellitus [Not Recovered/Not Resolved]
